FAERS Safety Report 12508567 (Version 1)
Quarter: 2016Q2

REPORT INFORMATION
  Report Type: Spontaneous
  Country: VE (occurrence: VE)
  Receive Date: 20160629
  Receipt Date: 20160629
  Transmission Date: 20160815
  Serious: Yes (Other)
  Sender: FDA-Public Use
  Company Number: VE-PFIZER INC-2016317494

PATIENT
  Age: 58 Year
  Sex: Female

DRUGS (1)
  1. EFFEXOR [Suspect]
     Active Substance: VENLAFAXINE HYDROCHLORIDE
     Indication: DEPRESSION
     Dosage: 75 MG, 1X/DAY
     Dates: start: 2001, end: 20160603

REACTIONS (6)
  - Suicidal ideation [Unknown]
  - Blindness [Unknown]
  - Malaise [Unknown]
  - Dizziness [Unknown]
  - Feeling of despair [Unknown]
  - Myalgia [Unknown]

NARRATIVE: CASE EVENT DATE: 201606
